FAERS Safety Report 4966560-7 (Version None)
Quarter: 2006Q2

REPORT INFORMATION
  Report Type: 
  Country: None (occurrence: None)
  Receive Date: 20060407
  Receipt Date: 20060327
  Transmission Date: 20061013
  Serious: No
  Sender: FDA-Public Use
  Company Number: US-JNJFOC-20051200293

PATIENT
  Sex: Female
  Weight: 56.25 kg

DRUGS (2)
  1. ORTHO EVRA [Suspect]
     Indication: DRUG USE FOR UNKNOWN INDICATION
     Route: 062
  2. STEROID INJECTION NOS [Suspect]
     Indication: DRUG USE FOR UNKNOWN INDICATION

REACTIONS (1)
  - SKIN ATROPHY [None]
